FAERS Safety Report 18905025 (Version 1)
Quarter: 2021Q1

REPORT INFORMATION
  Report Type: Spontaneous
  Country: FR (occurrence: FR)
  Receive Date: 20210217
  Receipt Date: 20210217
  Transmission Date: 20210420
  Serious: Yes (Hospitalization)
  Sender: FDA-Public Use
  Company Number: FR-TEVA-2021-FR-1880014

PATIENT
  Age: 47 Year
  Sex: Female
  Weight: 50 kg

DRUGS (6)
  1. LEPTICUR [Suspect]
     Active Substance: TROPATEPINE HYDROCHLORIDE
     Route: 065
  2. CARBAMAZEPINE. [Suspect]
     Active Substance: CARBAMAZEPINE
     Indication: SCHIZOPHRENIA
     Dosage: 200GRAM
     Route: 048
     Dates: start: 201912, end: 20210117
  3. OLANZAPINE. [Suspect]
     Active Substance: OLANZAPINE
     Indication: SCHIZOPHRENIA
     Dosage: 20MILLIGRAM
     Route: 048
     Dates: end: 20210117
  4. DULOXETINE (CHLORHYDRATE DE) [Suspect]
     Active Substance: DULOXETINE
     Indication: MENTAL DISORDER
     Dosage: 0.6GRAM
     Route: 048
     Dates: end: 20210117
  5. ALPRAZOLAM BGR [Suspect]
     Active Substance: ALPRAZOLAM
     Route: 065
  6. FLUANXOL LP 100 MG/1 ML, SOLUTION INJECTABLE (IM) [Suspect]
     Active Substance: FLUPENTIXOL DECANOATE
     Indication: SCHIZOPHRENIA
     Dosage: 50MILLIGRAM
     Route: 030
     Dates: end: 20210105

REACTIONS (1)
  - Hyponatraemia [Recovered/Resolved]

NARRATIVE: CASE EVENT DATE: 20210117
